FAERS Safety Report 8059180-1 (Version None)
Quarter: 2012Q1

REPORT INFORMATION
  Report Type: 
  Country: None (occurrence: None)
  Receive Date: 20120119
  Receipt Date: 20120119
  Transmission Date: 20120608
  Serious: No
  Sender: FDA-Public Use
  Company Number: None

PATIENT
  Age: 50 Year
  Sex: Female
  Weight: 62.5964 kg

DRUGS (1)
  1. SULFAMETHOXAZOLE AND TRIMETHOPRIM DOUBLE STRENGTH [Suspect]
     Indication: INFECTION
     Dosage: 1 TABLET TWICE DAILY MOUTH
     Route: 048

REACTIONS (4)
  - WHEEZING [None]
  - URTICARIA [None]
  - DYSPHONIA [None]
  - COUGH [None]
